FAERS Safety Report 6271304-5 (Version None)
Quarter: 2009Q3

REPORT INFORMATION
  Report Type: 
  Country: None (occurrence: None)
  Receive Date: 20090716
  Receipt Date: 20090716
  Transmission Date: 20100115
  Serious: Yes (Hospitalization, Other)
  Sender: FDA-Public Use
  Company Number: None

PATIENT

DRUGS (1)
  1. AMBIEN CR [Suspect]
     Indication: INSOMNIA
     Dosage: 12.5 MG HS PO   ONLY ONE TIME
     Route: 048
     Dates: start: 20090617

REACTIONS (5)
  - HALLUCINATION [None]
  - IMPRISONMENT [None]
  - PHYSICAL ASSAULT [None]
  - PSYCHOTIC DISORDER [None]
  - VIOLENCE-RELATED SYMPTOM [None]
